FAERS Safety Report 17959606 (Version 3)
Quarter: 2024Q2

REPORT INFORMATION
  Report Type: Other
  Country: US (occurrence: None)
  Receive Date: 20200630
  Receipt Date: 20240530
  Transmission Date: 20240715
  Serious: Yes (Hospitalization, Other)
  Sender: FDA-Public Use
  Company Number: US-ROCHE-2630295

PATIENT
  Age: 65 Year
  Sex: Female
  Weight: 67.646 kg

DRUGS (7)
  1. OCREVUS [Suspect]
     Active Substance: OCRELIZUMAB
     Indication: Relapsing-remitting multiple sclerosis
     Route: 042
     Dates: start: 20171113, end: 201912
  2. OCREVUS [Suspect]
     Active Substance: OCRELIZUMAB
     Indication: Multiple sclerosis
     Dosage: ONGOING: UNKNOWN
     Route: 065
     Dates: start: 20171113
  3. BACLOFEN [Concomitant]
     Active Substance: BACLOFEN
     Route: 048
  4. PRAVASTATIN [Concomitant]
     Active Substance: PRAVASTATIN
     Route: 048
  5. ASPIRIN [Concomitant]
     Active Substance: ASPIRIN
     Route: 048
  6. VITAMIN D3 [Concomitant]
     Active Substance: CHOLECALCIFEROL
     Route: 048
  7. CALCIUM [Concomitant]
     Active Substance: CALCIUM
     Indication: Osteoporosis
     Route: 048

REACTIONS (12)
  - Escherichia urinary tract infection [Recovered/Resolved]
  - Streptococcal bacteraemia [Not Recovered/Not Resolved]
  - Pyrexia [Recovered/Resolved]
  - Urinary retention [Recovering/Resolving]
  - Drug ineffective [Unknown]
  - Peroneal nerve palsy [Not Recovered/Not Resolved]
  - Blood pressure decreased [Recovered/Resolved]
  - Arthralgia [Not Recovered/Not Resolved]
  - Ligament rupture [Unknown]
  - Tendon rupture [Unknown]
  - Fall [Unknown]
  - Dysgraphia [Not Recovered/Not Resolved]

NARRATIVE: CASE EVENT DATE: 20171113
